FAERS Safety Report 7418041-9 (Version None)
Quarter: 2011Q2

REPORT INFORMATION
  Report Type: 
  Country: None (occurrence: None)
  Receive Date: 20110415
  Receipt Date: 20110411
  Transmission Date: 20111010
  Serious: Yes (Other)
  Sender: FDA-Public Use
  Company Number: BE-ROCHE-770442

PATIENT
  Sex: Male
  Weight: 97 kg

DRUGS (2)
  1. AMLODIPINE BESYLATE [Concomitant]
     Indication: HYPERTENSION
  2. CAPECITABINE [Suspect]
     Indication: RECTAL CANCER
     Dosage: 3 TABLETS IN THE EVENING FROM DAY 1 TO DAY 33 WITHOUT WEEKENDS.
     Route: 048
     Dates: start: 20090410

REACTIONS (1)
  - POST PROCEDURAL HAEMORRHAGE [None]
